FAERS Safety Report 5578869-7 (Version None)
Quarter: 2007Q4

REPORT INFORMATION
  Report Type: 
  Country: None (occurrence: None)
  Receive Date: 20071228
  Receipt Date: 20071218
  Transmission Date: 20080405
  Serious: Yes (Hospitalization)
  Sender: FDA-Public Use
  Company Number: 2007S1013591

PATIENT

DRUGS (2)
  1. METFORMIN HYDROCHLORIDE [Suspect]
  2. BYETTA [Suspect]

REACTIONS (1)
  - HOSPITALISATION [None]
